FAERS Safety Report 7914860-0 (Version None)
Quarter: 2011Q4

REPORT INFORMATION
  Report Type: 
  Country: None (occurrence: None)
  Receive Date: 20111115
  Receipt Date: 20111107
  Transmission Date: 20120403
  Serious: Yes (Other)
  Sender: FDA-Public Use
  Company Number: US-SANOFI-AVENTIS-2011SA073794

PATIENT
  Age: 59 Year
  Sex: Female

DRUGS (2)
  1. LANTUS [Suspect]
     Indication: DIABETES MELLITUS
     Dosage: DOSE:50 UNIT(S)
     Route: 058
     Dates: start: 20060101
  2. SOLOSTAR [Suspect]
     Indication: DIABETES MELLITUS
     Dates: start: 20060101

REACTIONS (1)
  - CYST [None]
